FAERS Safety Report 5131815-2 (Version None)
Quarter: 2006Q4

REPORT INFORMATION
  Report Type: 
  Country: None (occurrence: None)
  Receive Date: 20061016
  Receipt Date: 20061004
  Transmission Date: 20070319
  Serious: Yes (Death, Life-Threatening, Hospitalization, Other)
  Sender: FDA-Public Use
  Company Number: 2003011180

PATIENT
  Age: 48 Year
  Sex: Female
  Weight: 45.9947 kg

DRUGS (5)
  1. AZULFIDINE [Suspect]
     Indication: RHEUMATOID ARTHRITIS
     Dosage: 1000 MG (500 MG, 2 IN 1 D), ORAL
     Route: 048
     Dates: start: 20030225, end: 20030307
  2. ZITHROMAX [Suspect]
     Indication: PYREXIA
     Dosage: 500 MG (1 IN 1 D), ORAL
     Route: 048
     Dates: start: 20030308, end: 20030309
  3. PIPERACILLIN SODIUM [Suspect]
     Indication: INFECTIOUS DISEASE CARRIER
     Dosage: 2 GRAM (1 GRAM, 2 IN 1 D), INTRAVENOUS
     Route: 042
     Dates: start: 20030316, end: 20030319
  4. SELBEX (TEPRENONE) [Concomitant]
  5. INDOMETHACIN [Concomitant]

REACTIONS (44)
  - ACUTE RESPIRATORY DISTRESS SYNDROME [None]
  - ADVERSE DRUG REACTION [None]
  - AUTOIMMUNE DISORDER [None]
  - BACTERIA SPUTUM IDENTIFIED [None]
  - CENTRAL NERVOUS SYSTEM LESION [None]
  - CENTRAL PAIN SYNDROME [None]
  - CHEST PAIN [None]
  - CHILLS [None]
  - COLLAGEN DISORDER [None]
  - CONVULSION [None]
  - CRYING [None]
  - CSF CELL COUNT INCREASED [None]
  - DEPRESSED LEVEL OF CONSCIOUSNESS [None]
  - DERMATITIS [None]
  - DISEASE RECURRENCE [None]
  - DISSEMINATED INTRAVASCULAR COAGULATION [None]
  - DRUG ERUPTION [None]
  - DRUG INEFFECTIVE [None]
  - ELECTROENCEPHALOGRAM ABNORMAL [None]
  - ENCEPHALOPATHY ALLERGIC [None]
  - HEADACHE [None]
  - HEPATIC FAILURE [None]
  - HEPATOCELLULAR DAMAGE [None]
  - ILL-DEFINED DISORDER [None]
  - INFECTION [None]
  - INFLAMMATION [None]
  - LACK OF SPONTANEOUS SPEECH [None]
  - LIVER DISORDER [None]
  - LYMPHOCYTE STIMULATION TEST POSITIVE [None]
  - MULTI-ORGAN FAILURE [None]
  - NASOPHARYNGEAL DISORDER [None]
  - NUCLEAR MAGNETIC RESONANCE IMAGING BRAIN ABNORMAL [None]
  - PAIN [None]
  - PAIN IN EXTREMITY [None]
  - PLATELET COUNT DECREASED [None]
  - PYREXIA [None]
  - RASH GENERALISED [None]
  - RESPIRATORY FAILURE [None]
  - RESPIRATORY TRACT INFECTION [None]
  - RHEUMATOID ARTHRITIS [None]
  - SOMNOLENCE [None]
  - STAPHYLOCOCCAL INFECTION [None]
  - TIC [None]
  - UPPER RESPIRATORY TRACT INFECTION [None]
